FAERS Safety Report 10721662 (Version 3)
Quarter: 2015Q2

REPORT INFORMATION
  Report Type: Spontaneous
  Country: US (occurrence: US)
  Receive Date: 20150119
  Receipt Date: 20150616
  Transmission Date: 20150821
  Serious: Yes (Hospitalization, Disabling, Other)
  Sender: FDA-Public Use
  Company Number: US-009507513-1104USA03265

PATIENT
  Sex: Female

DRUGS (3)
  1. ALENDRONATE SODIUM. [Suspect]
     Active Substance: ALENDRONATE SODIUM
     Dosage: 70 MG, UNK
     Route: 048
     Dates: start: 20080303, end: 20090408
  2. FOSAMAX [Suspect]
     Active Substance: ALENDRONATE SODIUM
     Indication: BONE DENSITY DECREASED
     Dosage: 10 MG, UNK
     Route: 048
     Dates: start: 20020416, end: 20061206
  3. FOSAMAX [Suspect]
     Active Substance: ALENDRONATE SODIUM
     Dosage: 70 MG, UNK
     Route: 048
     Dates: start: 20060313, end: 20080204

REACTIONS (16)
  - Spinal column stenosis [Unknown]
  - Hypertension [Unknown]
  - Spinal disorder [Unknown]
  - Hypokalaemia [Unknown]
  - Asthma [Unknown]
  - Hypothyroidism [Unknown]
  - Blood calcium decreased [Unknown]
  - Neuropathy peripheral [Unknown]
  - Cardiac murmur [Unknown]
  - Blood magnesium abnormal [Unknown]
  - Chronic obstructive pulmonary disease [Unknown]
  - Bradycardia [Unknown]
  - Fall [Unknown]
  - Femur fracture [Recovered/Resolved]
  - Intramedullary rod insertion [Unknown]
  - Hyperlipidaemia [Unknown]

NARRATIVE: CASE EVENT DATE: 2004
